FAERS Safety Report 8499884-X (Version None)
Quarter: 2012Q3

REPORT INFORMATION
  Report Type: 
  Country: None (occurrence: None)
  Receive Date: 20120710
  Receipt Date: 20120702
  Transmission Date: 20120928
  Serious: Yes (Hospitalization, Other)
  Sender: FDA-Public Use
  Company Number: US-ASTRAZENECA-2011SE32214

PATIENT
  Age: 63 Year
  Sex: Female

DRUGS (20)
  1. NEXIUM [Suspect]
     Dosage: EVERY DAY
     Route: 048
     Dates: start: 20030101
  2. PRILOSEC OTC [Concomitant]
  3. TARKA [Concomitant]
     Indication: HYPERTENSION
  4. LYRICAL [Concomitant]
     Route: 048
  5. MELOXICAM [Concomitant]
  6. NEXIUM [Suspect]
     Route: 048
     Dates: start: 20021104
  7. BISMUTH SUBSALICYLATE [Concomitant]
     Dosage: USED PERIODICALLY IF NEEDED
  8. LYRICAL [Concomitant]
     Indication: FIBROMYALGIA
     Route: 048
  9. CYCLOBENZAPRIN [Concomitant]
  10. FOSAMAX [Concomitant]
     Indication: FIBROMYALGIA
     Dates: start: 20110509
  11. CITRACAL D3 [Concomitant]
  12. IMITREX [Concomitant]
  13. TRAMADOL HCL [Concomitant]
     Indication: PAIN
     Dosage: AS NEEDED
  14. ROLAIDS [Concomitant]
     Dosage: USED PERIODICALLY IF NEEDED
  15. AMITRIPTYLINE HCL [Concomitant]
     Indication: MIGRAINE
  16. PROLIA [Concomitant]
     Indication: BONE DISORDER
     Dosage: SHOT EVERY 6 MONTH
  17. FEXOFENADINE [Concomitant]
     Dates: start: 20021104
  18. ASPIRIN [Concomitant]
     Dates: start: 20021104
  19. NEXIUM [Suspect]
     Indication: GASTROOESOPHAGEAL REFLUX DISEASE
     Dosage: 40 MG DAILY AND SOMETIME TWICE A DAY ASS NEEDED
     Route: 048
     Dates: start: 20010101, end: 20110101
  20. CALCIUM CARBONATE [Concomitant]
     Dates: start: 20021104

REACTIONS (10)
  - FALL [None]
  - FOOT FRACTURE [None]
  - BONE LOSS [None]
  - OSTEOPENIA [None]
  - EMOTIONAL DISTRESS [None]
  - RIB FRACTURE [None]
  - INTERVERTEBRAL DISC DEGENERATION [None]
  - VITAMIN D DEFICIENCY [None]
  - BONE DENSITY DECREASED [None]
  - ANKLE FRACTURE [None]
